FAERS Safety Report 4731833-X (Version None)
Quarter: 2005Q3

REPORT INFORMATION
  Report Type: 
  Country: None (occurrence: None)
  Receive Date: 20050802
  Receipt Date: 20050802
  Transmission Date: 20060218
  Serious: Yes (Hospitalization)
  Sender: FDA-Public Use
  Company Number: None

PATIENT
  Age: 54 Year
  Sex: Female
  Weight: 59.01 kg

DRUGS (1)
  1. REMICADE [Suspect]
     Indication: CROHN'S DISEASE
     Dates: start: 20040201, end: 20050201

REACTIONS (7)
  - ABDOMINAL PAIN LOWER [None]
  - CHILLS [None]
  - COCCIDIOIDOMYCOSIS [None]
  - CULTURE URINE POSITIVE [None]
  - FLANK PAIN [None]
  - PYREXIA [None]
  - PYURIA [None]
